FAERS Safety Report 21322338 (Version 6)
Quarter: 2024Q1

REPORT INFORMATION
  Report Type: Spontaneous
  Country: JP (occurrence: JP)
  Receive Date: 20220912
  Receipt Date: 20240322
  Transmission Date: 20240410
  Serious: Yes (Life-Threatening, Hospitalization, Disabling, Other)
  Sender: FDA-Public Use
  Company Number: JP-ONO-2022JP024507

PATIENT
  Age: 44 Year
  Sex: Male
  Weight: 78 kg

DRUGS (3)
  1. OPDIVO [Suspect]
     Active Substance: NIVOLUMAB
     Indication: Gastric cancer
     Route: 041
     Dates: start: 20220607, end: 20220719
  2. OXALIPLATIN [Suspect]
     Active Substance: OXALIPLATIN
     Indication: Gastric cancer
     Dosage: UNK
     Dates: start: 20220607, end: 20220809
  3. GIMERACIL\OTERACIL\TEGAFUR [Suspect]
     Active Substance: GIMERACIL\OTERACIL POTASSIUM\TEGAFUR
     Indication: Gastric cancer
     Dosage: UNK
     Dates: start: 20220607, end: 20220809

REACTIONS (9)
  - Metabolic acidosis [Recovered/Resolved]
  - Polymyositis [Recovered/Resolved with Sequelae]
  - Myocarditis [Recovered/Resolved]
  - Circulatory collapse [Unknown]
  - Cytokine release syndrome [Recovered/Resolved]
  - Muscular weakness [Recovering/Resolving]
  - Myasthenia gravis [Recovered/Resolved]
  - Acute kidney injury [Recovered/Resolved]
  - Cerebellar infarction [Unknown]

NARRATIVE: CASE EVENT DATE: 20220809
